FAERS Safety Report 17421378 (Version 4)
Quarter: 2020Q3

REPORT INFORMATION
  Report Type: Report from Study
  Country: US (occurrence: US)
  Receive Date: 20200214
  Receipt Date: 20200724
  Transmission Date: 20201102
  Serious: Yes (Hospitalization, Other)
  Sender: FDA-Public Use
  Company Number: US-ACTELION-A-US2020-201867

PATIENT
  Age: 76 Year
  Sex: Female
  Weight: 52.15 kg

DRUGS (2)
  1. OPSUMIT [Suspect]
     Active Substance: MACITENTAN
     Indication: PULMONARY ARTERIAL HYPERTENSION
     Dosage: 10 MG, QD
     Route: 048
  2. TADALAFIL. [Concomitant]
     Active Substance: TADALAFIL

REACTIONS (8)
  - Bladder neoplasm surgery [Unknown]
  - Angina pectoris [Unknown]
  - Drug withdrawal syndrome [Unknown]
  - Bronchitis [Unknown]
  - Bladder cancer [Unknown]
  - Limb discomfort [Unknown]
  - Asthenia [Unknown]
  - Tremor [Unknown]

NARRATIVE: CASE EVENT DATE: 202005
